FAERS Safety Report 9165812 (Version 4)
Quarter: 2014Q2

REPORT INFORMATION
  Report Type: Spontaneous
  Country: US (occurrence: US)
  Receive Date: 20130315
  Receipt Date: 20140609
  Transmission Date: 20141212
  Serious: No
  Sender: FDA-Public Use
  Company Number: US-009507513-1303USA006766

PATIENT
  Sex: Male

DRUGS (1)
  1. PROPECIA [Suspect]
     Indication: ALOPECIA
     Dosage: 1 MG, QD
     Route: 048
     Dates: start: 200409

REACTIONS (19)
  - Dry skin [Unknown]
  - Erectile dysfunction [Not Recovered/Not Resolved]
  - Sexual dysfunction [Not Recovered/Not Resolved]
  - Dysuria [Not Recovered/Not Resolved]
  - Pain [Unknown]
  - Irritability [Unknown]
  - Anxiety [Unknown]
  - Panic attack [Unknown]
  - Fatigue [Unknown]
  - Myalgia [Unknown]
  - Lethargy [Unknown]
  - Headache [Unknown]
  - Dizziness [Unknown]
  - Mood swings [Unknown]
  - Insomnia [Unknown]
  - Depression [Unknown]
  - Social avoidant behaviour [Unknown]
  - Suicidal ideation [Unknown]
  - Apathy [Unknown]
